FAERS Safety Report 6682640-2 (Version None)
Quarter: 2010Q2

REPORT INFORMATION
  Report Type: 
  Country: None (occurrence: None)
  Receive Date: 20100415
  Receipt Date: 20100409
  Transmission Date: 20101027
  Serious: Yes (Death, Other)
  Sender: FDA-Public Use
  Company Number: FR-BRISTOL-MYERS SQUIBB COMPANY-15043664

PATIENT
  Age: 39 Year
  Sex: Male
  Weight: 134 kg

DRUGS (4)
  1. ABILIFY [Suspect]
     Indication: SCHIZOPHRENIA
     Dosage: INITIATED WITH 5MG/D
     Route: 048
     Dates: start: 20091002
  2. TAHOR [Concomitant]
  3. SERESTA [Concomitant]
  4. ZOLPIDEM [Concomitant]

REACTIONS (3)
  - METABOLIC SYNDROME [None]
  - MYOCARDIAL INFARCTION [None]
  - WEIGHT INCREASED [None]
